FAERS Safety Report 6413039-1 (Version None)
Quarter: 2009Q4

REPORT INFORMATION
  Report Type: 
  Country: None (occurrence: None)
  Receive Date: 20091023
  Receipt Date: 20091023
  Transmission Date: 20100525
  Serious: No
  Sender: FDA-Public Use
  Company Number: None

PATIENT
  Sex: Female
  Weight: 48.9885 kg

DRUGS (1)
  1. DEPAKOTE [Suspect]
     Indication: AMNESIA
     Dosage: 5 TABLETS 3 AM - 2 PM MOUTH EVERY DAY
     Route: 048

REACTIONS (2)
  - INSOMNIA [None]
  - WEIGHT FLUCTUATION [None]
